FAERS Safety Report 13464855 (Version 1)
Quarter: 2017Q2

REPORT INFORMATION
  Report Type: Spontaneous
  Country: AT (occurrence: AT)
  Receive Date: 20170420
  Receipt Date: 20170420
  Transmission Date: 20170830
  Serious: Yes (Congenital Anomaly, Other)
  Sender: FDA-Public Use
  Company Number: AT-MYLANLABS-2017M1024596

PATIENT

DRUGS (2)
  1. LEVOTHYROXINE. [Suspect]
     Active Substance: LEVOTHYROXINE
     Indication: HYPOTHYROIDISM
     Route: 064
  2. METHIMAZOLE. [Suspect]
     Active Substance: METHIMAZOLE
     Indication: PRODUCT USED FOR UNKNOWN INDICATION
     Route: 064

REACTIONS (12)
  - Neonatal thyrotoxicosis [Recovering/Resolving]
  - Apgar score low [Recovering/Resolving]
  - Congenital hyperthyroidism [Recovering/Resolving]
  - Pulmonary hypertension [Recovering/Resolving]
  - Foetal exposure during pregnancy [Recovered/Resolved]
  - Cardiac failure [Recovering/Resolving]
  - Neonatal asphyxia [Recovering/Resolving]
  - Shock [Recovering/Resolving]
  - Goitre congenital [Recovering/Resolving]
  - Foetal arrhythmia [Recovering/Resolving]
  - Acidosis [Recovering/Resolving]
  - Premature baby [Recovered/Resolved]
